FAERS Safety Report 5571726-1 (Version None)
Quarter: 2007Q4

REPORT INFORMATION
  Report Type: 
  Country: None (occurrence: None)
  Receive Date: 20071221
  Receipt Date: 20071218
  Transmission Date: 20080405
  Serious: Yes (Hospitalization)
  Sender: FDA-Public Use
  Company Number: A0699806A

PATIENT
  Age: 77 Year
  Sex: Male
  Weight: 90.9 kg

DRUGS (2)
  1. DUTASTERIDE [Suspect]
     Indication: PROSTATE CANCER
     Dosage: 3.5MG PER DAY
     Route: 048
     Dates: start: 20071030
  2. CASODEX [Suspect]
     Indication: PROSTATE CANCER
     Dosage: 50MG PER DAY
     Route: 048
     Dates: start: 20071030

REACTIONS (4)
  - BLOOD PRESSURE INCREASED [None]
  - DIZZINESS [None]
  - VERTIGO [None]
  - VISION BLURRED [None]
